FAERS Safety Report 5304510-4 (Version None)
Quarter: 2007Q2

REPORT INFORMATION
  Report Type: 
  Country: None (occurrence: None)
  Receive Date: 20070423
  Receipt Date: 20070412
  Transmission Date: 20071010
  Serious: Yes (Life-Threatening)
  Sender: FDA-Public Use
  Company Number: JP-JNJFOC-20070402714

PATIENT
  Age: 72 Year
  Sex: Male

DRUGS (4)
  1. DUROTEP [Suspect]
     Indication: CANCER PAIN
     Route: 062
  2. MEXITIL [Concomitant]
  3. INDERAL [Concomitant]
  4. PENTASA [Concomitant]

REACTIONS (1)
  - RESPIRATORY ARREST [None]
